FAERS Safety Report 18019536 (Version 1)
Quarter: 2020Q3

REPORT INFORMATION
  Report Type: Spontaneous
  Country: US (occurrence: US)
  Receive Date: 20200714
  Receipt Date: 20200714
  Transmission Date: 20201103
  Serious: Yes (Other)
  Sender: FDA-Public Use
  Company Number: None

PATIENT
  Age: 56 Year
  Sex: Male
  Weight: 90 kg

DRUGS (15)
  1. HUMALOG [Concomitant]
     Active Substance: INSULIN LISPRO
  2. PSEUDOEPHEDRINE HCL [Concomitant]
     Active Substance: PSEUDOEPHEDRINE HYDROCHLORIDE
  3. CHLORPHENIRAMINE MALEATE. [Concomitant]
     Active Substance: CHLORPHENIRAMINE MALEATE
  4. OXYCODONE [Concomitant]
     Active Substance: OXYCODONE
  5. XYOSTED (TESTOSTERONE) [Concomitant]
  6. CLONOZEPAM [Concomitant]
  7. PRILOSEC [Concomitant]
     Active Substance: OMEPRAZOLE MAGNESIUM
  8. LANTUS [Concomitant]
     Active Substance: INSULIN GLARGINE
  9. FENOFIBRATE. [Concomitant]
     Active Substance: FENOFIBRATE
  10. BACLOFEN. [Concomitant]
     Active Substance: BACLOFEN
  11. ASPIRIN. [Concomitant]
     Active Substance: ASPIRIN
  12. GUAIFENESIN. [Concomitant]
     Active Substance: GUAIFENESIN
  13. BAQSIMI [Suspect]
     Active Substance: GLUCAGON
     Indication: HYPOGLYCAEMIA
     Dosage: ?          QUANTITY:1 SPRAY(S);?
     Route: 055
     Dates: start: 20200711, end: 20200711
  14. HYDROMORPHONE [Concomitant]
     Active Substance: HYDROMORPHONE
  15. DYPHENHYDRAMINE HCL [Concomitant]

REACTIONS (8)
  - Sinus pain [None]
  - Gingival pain [None]
  - Parosmia [None]
  - Headache [None]
  - Toothache [None]
  - Burning sensation [None]
  - Migraine [None]
  - Rhinalgia [None]

NARRATIVE: CASE EVENT DATE: 20200711
